FAERS Safety Report 5944347-6 (Version None)
Quarter: 2008Q4

REPORT INFORMATION
  Report Type: 
  Country: None (occurrence: None)
  Receive Date: 20081105
  Receipt Date: 20081020
  Transmission Date: 20090506
  Serious: Yes (Hospitalization)
  Sender: FDA-Public Use
  Company Number: 2008PL000161

PATIENT
  Age: 60 Year
  Sex: Female

DRUGS (8)
  1. LOTRONEX [Suspect]
     Indication: IRRITABLE BOWEL SYNDROME
     Dosage: 0.5 MG; BIW; PO
     Route: 048
     Dates: start: 20081001
  2. ZOCOR [Concomitant]
  3. MAXZIDE [Concomitant]
  4. RELAFEN [Concomitant]
  5. METROGEL [Concomitant]
  6. NULEV [Concomitant]
  7. DARVOCET /00220901/ [Concomitant]
  8. DONNATAL [Concomitant]

REACTIONS (12)
  - ABDOMINAL ADHESIONS [None]
  - BLOOD ALKALINE PHOSPHATASE INCREASED [None]
  - BLOOD CALCIUM INCREASED [None]
  - COLITIS ISCHAEMIC [None]
  - ENTEROCOLITIS INFECTIOUS [None]
  - GLOBULINS INCREASED [None]
  - HAEMORRHAGE [None]
  - IMPAIRED WORK ABILITY [None]
  - INTESTINAL CONGESTION [None]
  - PLEURAL EFFUSION [None]
  - PROTEIN TOTAL INCREASED [None]
  - SEPSIS [None]
